FAERS Safety Report 5739960-5 (Version None)
Quarter: 2008Q2

REPORT INFORMATION
  Report Type: 
  Country: None (occurrence: None)
  Receive Date: 20080513
  Receipt Date: 20080513
  Transmission Date: 20081010
  Serious: Yes (Hospitalization)
  Sender: FDA-Public Use
  Company Number: None

PATIENT
  Sex: Male
  Weight: 92.6 kg

DRUGS (17)
  1. XELODA [Suspect]
     Dosage: 31800 MG
  2. IRINOTECAN HCL [Suspect]
     Dosage: 260 MG
  3. ELOXATIN [Suspect]
     Dosage: 170 MG
  4. ALBUTEROL [Concomitant]
  5. ALLOPURINOL [Concomitant]
  6. AMITRIPTYLINE HCL [Concomitant]
  7. ATENOLOL [Concomitant]
  8. ATROVENT [Concomitant]
  9. COMPAZINE [Concomitant]
  10. DILAUDID [Concomitant]
  11. FLOVENT [Concomitant]
  12. KYTRIL [Concomitant]
  13. LISINOPRIL [Concomitant]
  14. LORAZEPAM [Concomitant]
  15. OMEPRAZOLE [Concomitant]
  16. PATANOL [Concomitant]
  17. QUININE SULFATE [Concomitant]

REACTIONS (6)
  - ABDOMINAL PAIN [None]
  - DEHYDRATION [None]
  - DIARRHOEA [None]
  - FATIGUE [None]
  - LETHARGY [None]
  - MALAISE [None]
